FAERS Safety Report 21351741 (Version 1)
Quarter: 2022Q3

REPORT INFORMATION
  Report Type: Spontaneous
  Country: US (occurrence: US)
  Receive Date: 20220919
  Receipt Date: 20220919
  Transmission Date: 20221027
  Serious: No
  Sender: FDA-Public Use
  Company Number: US-BRISTOL-MYERS SQUIBB COMPANY-2022-107109

PATIENT
  Age: 77 Year
  Sex: Female
  Weight: 71.21 kg

DRUGS (3)
  1. ELIQUIS [Suspect]
     Active Substance: APIXABAN
     Indication: Deep vein thrombosis
     Dosage: FREQ : PRESCRIBED AS ONE TABLET TWICE DAILY
     Route: 048
     Dates: start: 2015
  2. CALCIUM [CALCIUM CHLORIDE HEXAHYDRATE] [Concomitant]
  3. CHOLECALCIFEROL [Concomitant]
     Active Substance: CHOLECALCIFEROL

REACTIONS (1)
  - Treatment noncompliance [Unknown]
